FAERS Safety Report 23774929 (Version 1)
Quarter: 2024Q2

REPORT INFORMATION
  Report Type: Spontaneous
  Country: RU (occurrence: RU)
  Receive Date: 20240423
  Receipt Date: 20240423
  Transmission Date: 20240716
  Serious: Yes (Other)
  Sender: FDA-Public Use
  Company Number: RU-PFIZER INC-PV202400051883

PATIENT
  Age: 32 Year

DRUGS (1)
  1. GEMTUZUMAB OZOGAMICIN [Suspect]
     Active Substance: GEMTUZUMAB OZOGAMICIN
     Dosage: UNK

REACTIONS (7)
  - Septic shock [Recovering/Resolving]
  - Multiple organ dysfunction syndrome [Unknown]
  - Myocarditis [Unknown]
  - Agranulocytosis [Unknown]
  - Acute graft versus host disease in skin [Unknown]
  - Escherichia infection [Recovering/Resolving]
  - Skin infection [Recovering/Resolving]
